FAERS Safety Report 4703659-4 (Version None)
Quarter: 2005Q2

REPORT INFORMATION
  Report Type: 
  Country: None (occurrence: None)
  Receive Date: 20050628
  Receipt Date: 20050613
  Transmission Date: 20051028
  Serious: Yes (Hospitalization, Other)
  Sender: FDA-Public Use
  Company Number: US_021290622

PATIENT
  Age: 52 Year
  Sex: Male
  Weight: 69 kg

DRUGS (7)
  1. HUMALOG [Suspect]
     Indication: DIABETES MELLITUS
     Dates: start: 20010101
  2. HUMULIN R [Suspect]
     Indication: DIABETES MELLITUS
     Dates: start: 19920101
  3. HUMULIN L [Suspect]
     Indication: DIABETES MELLITUS
     Dates: start: 19920101
  4. LANTUS [Concomitant]
  5. LISINOPRIL [Concomitant]
  6. ZOCOR [Concomitant]
  7. ASPIRIN [Concomitant]

REACTIONS (18)
  - ANKLE FRACTURE [None]
  - BLINDNESS [None]
  - BLOOD GLUCOSE FLUCTUATION [None]
  - CARDIOVASCULAR DISORDER [None]
  - DENTAL CARIES [None]
  - DIABETES MELLITUS INSULIN-DEPENDENT [None]
  - EYE INFECTION [None]
  - FALL [None]
  - FATIGUE [None]
  - FEMUR FRACTURE [None]
  - INTRAOCULAR PRESSURE INCREASED [None]
  - LACRIMATION INCREASED [None]
  - OPTIC NERVE DISORDER [None]
  - PAIN [None]
  - PATELLA FRACTURE [None]
  - PHARMACEUTICAL PRODUCT COMPLAINT [None]
  - POOR VENOUS ACCESS [None]
  - VISUAL ACUITY REDUCED [None]
